FAERS Safety Report 9717675 (Version 1)
Quarter: 2013Q4

REPORT INFORMATION
  Report Type: Spontaneous
  Country: GB (occurrence: GB)
  Receive Date: 20131127
  Receipt Date: 20131127
  Transmission Date: 20140711
  Serious: Yes (Life-Threatening, Hospitalization)
  Sender: FDA-Public Use
  Company Number: GB-ACTAVIS-2013-21552

PATIENT
  Age: 89 Year
  Sex: Male

DRUGS (5)
  1. CLOPIDOGREL (UNKNOWN) [Suspect]
     Indication: CEREBROVASCULAR ACCIDENT PROPHYLAXIS
     Dosage: 75 MG, DAILY
     Route: 048
     Dates: start: 20121129, end: 20131028
  2. METOCLOPRAMIDE [Concomitant]
     Indication: MALAISE
     Dosage: 10 MG, TID
     Route: 048
     Dates: end: 20131028
  3. PARACETAMOL [Concomitant]
     Indication: PAIN
     Dosage: 1 G, QID
     Route: 048
  4. PARACETAMOL [Concomitant]
     Indication: PYREXIA
  5. RANITIDINE [Concomitant]
     Indication: PRODUCT USED FOR UNKNOWN INDICATION
     Dosage: 150 MG, UNK
     Route: 048
     Dates: end: 20131028

REACTIONS (2)
  - Constipation [Recovering/Resolving]
  - Melaena [Recovering/Resolving]
